FAERS Safety Report 4847688-9 (Version None)
Quarter: 2005Q4

REPORT INFORMATION
  Report Type: 
  Country: None (occurrence: None)
  Receive Date: 20051205
  Receipt Date: 20051122
  Transmission Date: 20060501
  Serious: Yes (Other)
  Sender: FDA-Public Use
  Company Number: 2005-04591

PATIENT
  Sex: Female

DRUGS (1)
  1. TRELSTAR DEPOT [Suspect]
     Indication: PRECOCIOUS PUBERTY
     Dosage: 3 MG/28 DAYS, INTRAMUSCULAR
     Route: 030
     Dates: start: 20030709, end: 20041101

REACTIONS (1)
  - SYSTEMIC LUPUS ERYTHEMATOSUS [None]
